FAERS Safety Report 6876894-7 (Version None)
Quarter: 2010Q2

REPORT INFORMATION
  Report Type: 
  Country: None (occurrence: None)
  Receive Date: 20100616
  Receipt Date: 20100423
  Transmission Date: 20101027
  Serious: No
  Sender: FDA-Public Use
  Company Number: DSA_43043_2010

PATIENT
  Sex: Female

DRUGS (8)
  1. XENAZINE [Suspect]
     Indication: HUNTINGTON'S CHOREA
     Dosage: (HALF OF A 25 MG TAB ONCE DAILY ORAL)
     Route: 048
     Dates: start: 20100331
  2. LIPITOR [Concomitant]
  3. OMEPRAZOLE [Concomitant]
  4. CELEXA [Concomitant]
  5. TRAZODONE [Concomitant]
  6. VALTREX [Concomitant]
  7. TRAMADOL HYDROCHLORIDE [Concomitant]
  8. VYVANSE [Concomitant]

REACTIONS (1)
  - SOMNOLENCE [None]
